FAERS Safety Report 7371719-8 (Version None)
Quarter: 2011Q1

REPORT INFORMATION
  Report Type: 
  Country: None (occurrence: None)
  Receive Date: 20110324
  Receipt Date: 20110318
  Transmission Date: 20110831
  Serious: Yes (Hospitalization)
  Sender: FDA-Public Use
  Company Number: FR-ROCHE-717366

PATIENT
  Sex: Female
  Weight: 64 kg

DRUGS (26)
  1. MYCOPHENOLATE MOFETIL [Suspect]
     Route: 048
     Dates: start: 20100813
  2. SPASFON [Concomitant]
  3. PROGRAF [Suspect]
     Route: 065
     Dates: start: 20100803
  4. LASIX [Concomitant]
  5. SOLUPRED [Suspect]
     Route: 048
     Dates: start: 20100702
  6. PROGRAF [Suspect]
     Route: 065
     Dates: start: 20100101
  7. PERFALGAN [Concomitant]
  8. IMOVANE [Concomitant]
  9. REPAGLINIDE [Concomitant]
  10. LANTUS [Concomitant]
  11. CERTICAN [Suspect]
     Route: 048
     Dates: start: 20100706, end: 20100711
  12. KALEORID [Concomitant]
  13. FORLAX [Concomitant]
  14. NEXIUM [Concomitant]
  15. DEROXAT [Concomitant]
  16. SPECIAFOLDINE [Concomitant]
  17. MYCOPHENOLATE MOFETIL [Suspect]
     Dosage: DAILY DOSE: 1.5 GRAM OR 2 GRAM
     Route: 048
     Dates: end: 20100809
  18. SOLUPRED [Suspect]
     Dosage: DECREASED DOSE ACCORDING TO PROTOCOL
     Route: 048
     Dates: start: 20100703
  19. CERTICAN [Suspect]
     Dosage: THERAPY PERMANENTLY DISCONTINUED
     Route: 048
     Dates: start: 20100712, end: 20100728
  20. ACUPAN [Concomitant]
  21. INSULINE [Concomitant]
  22. LEXOMIL [Concomitant]
  23. FUROSEMIDE [Concomitant]
  24. CALCIPARINE [Concomitant]
  25. MYCOPHENOLATE MOFETIL [Suspect]
     Route: 048
     Dates: start: 20100701, end: 20100726
  26. BACTRIM [Concomitant]

REACTIONS (4)
  - UROSEPSIS [None]
  - BLOOD CREATININE INCREASED [None]
  - GENITAL HERPES [None]
  - TRANSPLANT REJECTION [None]
